FAERS Safety Report 8309189-5 (Version None)
Quarter: 2012Q2

REPORT INFORMATION
  Report Type: 
  Country: None (occurrence: None)
  Receive Date: 20120424
  Receipt Date: 20120410
  Transmission Date: 20120825
  Serious: Yes (Other)
  Sender: FDA-Public Use
  Company Number: JP-BAXTER-2012BAX002702

PATIENT
  Sex: Male

DRUGS (2)
  1. DIANEAL-N PD-4 1.5 PD SOLUTION [Suspect]
     Indication: GLOMERULONEPHRITIS
     Route: 033
     Dates: start: 20120418
  2. DIANEAL-N PD-4 1.5 PD SOLUTION [Suspect]

REACTIONS (2)
  - PLEURAL EFFUSION [None]
  - PLEUROPERITONEAL COMMUNICATION [None]
